FAERS Safety Report 9995585 (Version 1)
Quarter: 2014Q1

REPORT INFORMATION
  Report Type: Spontaneous
  Country: US (occurrence: None)
  Receive Date: 20140225
  Receipt Date: 20140225
  Transmission Date: 20141002
  Serious: Yes (Hospitalization)
  Sender: FDA-Public Use
  Company Number: 2012-578

PATIENT
  Age: 56 Year
  Sex: Male

DRUGS (2)
  1. PRIALT [Suspect]
     Indication: PAIN
  2. DILAUDID (HYDROMORPHONE HYDROCHLORIDE) INJECTION [Suspect]

REACTIONS (6)
  - Psychotic disorder [None]
  - Underdose [None]
  - Therapeutic response decreased [None]
  - Pain [None]
  - Drug withdrawal syndrome [None]
  - Device issue [None]
